FAERS Safety Report 25667921 (Version 1)
Quarter: 2025Q3

REPORT INFORMATION
  Report Type: Spontaneous
  Country: US (occurrence: US)
  Receive Date: 20250812
  Receipt Date: 20250812
  Transmission Date: 20251021
  Serious: No
  Sender: ENDO
  Company Number: US-ENDO USA, INC.-2025-001263

PATIENT
  Sex: Male

DRUGS (12)
  1. TESTOPEL [Suspect]
     Active Substance: TESTOSTERONE
     Indication: Blood testosterone decreased
     Route: 065
     Dates: start: 2010
  2. TESTOPEL [Suspect]
     Active Substance: TESTOSTERONE
     Indication: Blood testosterone decreased
     Route: 065
     Dates: start: 2010
  3. TESTOPEL [Suspect]
     Active Substance: TESTOSTERONE
     Indication: Blood testosterone decreased
     Route: 065
     Dates: start: 2010
  4. TESTOPEL [Suspect]
     Active Substance: TESTOSTERONE
     Route: 065
  5. TESTOPEL [Suspect]
     Active Substance: TESTOSTERONE
     Route: 065
  6. TESTOPEL [Suspect]
     Active Substance: TESTOSTERONE
     Route: 065
  7. TESTOPEL [Suspect]
     Active Substance: TESTOSTERONE
     Route: 065
  8. TESTOPEL [Suspect]
     Active Substance: TESTOSTERONE
     Route: 065
  9. TESTOPEL [Suspect]
     Active Substance: TESTOSTERONE
     Route: 065
  10. TESTOPEL [Suspect]
     Active Substance: TESTOSTERONE
     Route: 065
     Dates: start: 2021
  11. TESTOPEL [Suspect]
     Active Substance: TESTOSTERONE
     Route: 065
     Dates: start: 2021
  12. TESTOPEL [Suspect]
     Active Substance: TESTOSTERONE
     Route: 065
     Dates: start: 2021

REACTIONS (2)
  - Therapeutic product effect decreased [Unknown]
  - Off label use [Not Recovered/Not Resolved]

NARRATIVE: CASE EVENT DATE: 20100101
